FAERS Safety Report 9768414 (Version 2)
Quarter: 2014Q1

REPORT INFORMATION
  Report Type: Spontaneous
  Country: US (occurrence: US)
  Receive Date: 20131217
  Receipt Date: 20140113
  Transmission Date: 20141002
  Serious: No
  Sender: FDA-Public Use
  Company Number: US-GILEAD-2013-0090178

PATIENT
  Sex: Female

DRUGS (5)
  1. LETAIRIS [Suspect]
     Indication: PULMONARY HYPERTENSION
     Dosage: 10 MG, QD
     Route: 065
     Dates: start: 20100609
  2. LETAIRIS [Suspect]
     Indication: SCLERODERMA
  3. REMODULIN [Concomitant]
     Route: 065
  4. REVATIO [Concomitant]
     Route: 065
  5. WARFARIN SODIUM [Concomitant]
     Route: 065

REACTIONS (5)
  - Blood pressure abnormal [Unknown]
  - Infusion site reaction [Unknown]
  - Dizziness [Unknown]
  - Headache [Unknown]
  - Flushing [Unknown]
